FAERS Safety Report 6139085-3 (Version None)
Quarter: 2009Q1

REPORT INFORMATION
  Report Type: 
  Country: None (occurrence: None)
  Receive Date: 20090324
  Receipt Date: 20090316
  Transmission Date: 20090719
  Serious: No
  Sender: FDA-Public Use
  Company Number: 238581J08USA

PATIENT
  Age: 41 Year
  Sex: Female
  Weight: 117 kg

DRUGS (1)
  1. REBIF [Suspect]
     Indication: MULTIPLE SCLEROSIS
     Dosage: 44 MCG, 3 IN 1 WEEKS, SUBCUTANEOUS
     Route: 058
     Dates: start: 20070117

REACTIONS (5)
  - BLINDNESS TRANSIENT [None]
  - COUGH [None]
  - DYSPNOEA [None]
  - OPTIC NEURITIS [None]
  - PULMONARY FUNCTION TEST ABNORMAL [None]
